FAERS Safety Report 4743565-2 (Version None)
Quarter: 2005Q3

REPORT INFORMATION
  Report Type: 
  Country: None (occurrence: None)
  Receive Date: 20050809
  Receipt Date: 20050727
  Transmission Date: 20060218
  Serious: Yes (Other)
  Sender: FDA-Public Use
  Company Number: 2005107682

PATIENT
  Sex: Female
  Weight: 1.7 kg

DRUGS (4)
  1. SULPERAZON (SULBACTAM, CEFOPERAZONE) [Suspect]
     Indication: ENTEROVIRUS INFECTION
  2. AMPICILLIN AND CLOXACILLIN (AMPICILLIN, CLOXACILLIN) [Concomitant]
  3. AMIKACIN [Concomitant]
  4. IMMUNE GLOBULIN INTRAVENOUS (HUMAN) [Concomitant]

REACTIONS (5)
  - ABSCESS [None]
  - ENTEROVIRUS INFECTION [None]
  - FUNGAL INFECTION [None]
  - HYDRONEPHROSIS [None]
  - NEONATAL DISORDER [None]
